FAERS Safety Report 25750839 (Version 1)
Quarter: 2025Q3

REPORT INFORMATION
  Report Type: Report from Study
  Country: RU (occurrence: RU)
  Receive Date: 20250902
  Receipt Date: 20250902
  Transmission Date: 20251020
  Serious: Yes (Hospitalization)
  Sender: ASCEND THERAPEUTICS US, LLC
  Company Number: RU-Ascend Therapeutics US, LLC-2170799

PATIENT

DRUGS (4)
  1. ESTROGEL [Suspect]
     Active Substance: ESTRADIOL
     Indication: Product used for unknown indication
     Dates: start: 2024, end: 2024
  2. ESTRADIOL [Suspect]
     Active Substance: ESTRADIOL
     Dates: start: 2024, end: 2024
  3. ESTRADIOL [Suspect]
     Active Substance: ESTRADIOL
     Dates: start: 2024, end: 2024
  4. ESTRADIOL [Suspect]
     Active Substance: ESTRADIOL
     Dates: start: 2024, end: 2024

REACTIONS (2)
  - Premature baby [Unknown]
  - Foetal exposure during pregnancy [Unknown]

NARRATIVE: CASE EVENT DATE: 20240101
